FAERS Safety Report 8481890-2 (Version None)
Quarter: 2012Q3

REPORT INFORMATION
  Report Type: 
  Country: None (occurrence: None)
  Receive Date: 20120702
  Receipt Date: 20120619
  Transmission Date: 20120928
  Serious: No
  Sender: FDA-Public Use
  Company Number: US-ASTRAZENECA-2010SE26310

PATIENT
  Age: 74 Year
  Sex: Female

DRUGS (5)
  1. CRESTOR [Suspect]
     Route: 048
  2. OXYCODONE HCL [Concomitant]
  3. NEXIUM [Suspect]
     Indication: GASTRIC DISORDER
     Route: 048
  4. SYMBICORT [Suspect]
     Indication: RESPIRATORY DISORDER
     Dosage: 160/4.5 MCG, DAILY
     Route: 055
  5. ACCOLATE [Suspect]
     Indication: RESPIRATORY DISORDER
     Route: 048

REACTIONS (13)
  - BLADDER DISORDER [None]
  - SPINAL CORD INJURY [None]
  - PAIN [None]
  - SPINAL DEFORMITY [None]
  - NAUSEA [None]
  - BACK DISORDER [None]
  - MALAISE [None]
  - BACK PAIN [None]
  - RESPIRATORY DISORDER [None]
  - FALL [None]
  - MEMORY IMPAIRMENT [None]
  - LOSS OF CONSCIOUSNESS [None]
  - OFF LABEL USE [None]
